FAERS Safety Report 9995666 (Version 1)
Quarter: 2014Q1

REPORT INFORMATION
  Report Type: Spontaneous
  Country: US (occurrence: US)
  Receive Date: 20140311
  Receipt Date: 20140311
  Transmission Date: 20141002
  Serious: No
  Sender: FDA-Public Use
  Company Number: US-GALDERMA-US13001973

PATIENT
  Age: 38 Year
  Sex: Female

DRUGS (7)
  1. TRI-LUMA CREAM (FLUOCINOLONE ACETONIDE 0.01%, HYDROQUINONE 4%, TRETINO [Suspect]
     Indication: CHLOASMA
     Route: 061
     Dates: start: 20130523, end: 20130603
  2. CETAPHIL DAILY FACIAL CLEANSER [Concomitant]
     Indication: THERAPEUTIC SKIN CARE TOPICAL
     Route: 061
  3. CETAPHIL DERMACONTROL MOISTURIZER SPF30 [Concomitant]
     Indication: DRY SKIN PROPHYLAXIS
     Route: 061
     Dates: start: 201101
  4. CETAPHIL DERMACONTROL MOISTURIZER SPF30 [Concomitant]
     Indication: PROPHYLAXIS AGAINST SOLAR RADIATION
  5. DORYX [Concomitant]
     Indication: ACNE
     Route: 048
     Dates: start: 20120702
  6. SUMAXIN WASH (SODIUM SULFACETAMIDE 9% SULFUR 4%) [Concomitant]
     Indication: ACNE
     Route: 061
     Dates: start: 20120702
  7. CERAVE [Concomitant]
     Route: 061
     Dates: start: 201101

REACTIONS (5)
  - Dermatitis [Recovered/Resolved]
  - Acne [Recovered/Resolved]
  - Skin hyperpigmentation [Recovered/Resolved]
  - Blister [Recovered/Resolved]
  - Skin exfoliation [Recovered/Resolved]
